FAERS Safety Report 25488572 (Version 1)
Quarter: 2025Q2

REPORT INFORMATION
  Report Type: Spontaneous
  Country: IT (occurrence: IT)
  Receive Date: 20250627
  Receipt Date: 20250627
  Transmission Date: 20250717
  Serious: Yes (Other)
  Sender: INCYTE
  Company Number: IT-EVENT-003267

PATIENT
  Age: 68 Year

DRUGS (1)
  1. OPZELURA [Suspect]
     Active Substance: RUXOLITINIB PHOSPHATE
     Indication: Vitiligo
     Dosage: 15MG/G, QD

REACTIONS (4)
  - Basal cell carcinoma [Unknown]
  - Actinic keratosis [Unknown]
  - Application site folliculitis [Unknown]
  - Off label use [Unknown]
